FAERS Safety Report 6939586-1 (Version None)
Quarter: 2010Q3

REPORT INFORMATION
  Report Type: 
  Country: None (occurrence: None)
  Receive Date: 20100824
  Receipt Date: 20100712
  Transmission Date: 20110219
  Serious: Yes (Hospitalization, Disabling, Other)
  Sender: FDA-Public Use
  Company Number: PHEH2008US02463

PATIENT
  Sex: Male
  Weight: 91.55 kg

DRUGS (45)
  1. ZOMETA [Suspect]
     Dosage: UNK
     Dates: start: 20041020, end: 20050701
  2. LEVAQUIN [Concomitant]
  3. DOXYCYCLINE [Concomitant]
  4. ISOSORBIDE [Concomitant]
  5. COREG [Concomitant]
  6. FUROSEMIDE [Concomitant]
  7. CHEMOTHERAPEUTICS NOS [Concomitant]
  8. RADIATION [Concomitant]
  9. RITUXAN [Concomitant]
  10. CYCLOPHOSPHAMIDE W/VINCRISTINE/PREDNISONE [Concomitant]
  11. MITOXANTRONE [Concomitant]
  12. ZINECARD [Concomitant]
  13. NEULASTA [Concomitant]
  14. ARANESP [Concomitant]
  15. DECADRON [Concomitant]
  16. ACETAMINOPHEN [Concomitant]
  17. BENADRYL ^WARNER-LAMBERT^               /USA/ [Concomitant]
  18. ATENOLOL [Concomitant]
  19. CELEBREX [Concomitant]
  20. COUMADIN [Concomitant]
  21. NIFEDIPINE [Concomitant]
  22. ZOCOR [Concomitant]
  23. NITROGLYCERIN ^PHARMACIA + UPJOHN^ [Concomitant]
  24. WARFARIN [Concomitant]
  25. ASPIRIN [Concomitant]
  26. PREDNISONE [Concomitant]
  27. CIPROFLOXACIN [Concomitant]
  28. PROCHLORPERAZINE [Concomitant]
  29. LANSOPRAZOLE [Concomitant]
     Indication: ABDOMINAL DISCOMFORT
     Dosage: 1 DF, QD
     Route: 048
  30. NORVASC [Concomitant]
     Indication: HYPERTENSION
     Dosage: 1 DF, QD
     Route: 048
  31. COMPAZINE [Concomitant]
  32. PHENERGAN ^AVENTIS PHARMA^ [Concomitant]
  33. NEXIUM [Concomitant]
  34. PENICILLIN ^GRUNENTHAL^ [Concomitant]
  35. BIOTENE [Concomitant]
  36. MAGIC MOUTHWASH [Concomitant]
  37. ACTONEL [Concomitant]
  38. LORTAB [Concomitant]
  39. ALLOPURINOL [Concomitant]
  40. SIMVASTATIN [Concomitant]
  41. OXYCODONE [Concomitant]
  42. PETROLATUM [Concomitant]
  43. AMBIEN [Concomitant]
  44. PERCOCET [Concomitant]
  45. LASIX [Concomitant]

REACTIONS (92)
  - ABDOMINAL PAIN [None]
  - ALPHA HAEMOLYTIC STREPTOCOCCAL INFECTION [None]
  - AMNESIA [None]
  - ANAEMIA OF CHRONIC DISEASE [None]
  - ANXIETY [None]
  - ARTERIOSCLEROSIS CORONARY ARTERY [None]
  - ASCITES [None]
  - ASTHENIA [None]
  - BACK PAIN [None]
  - BONE MARROW OEDEMA [None]
  - BRONCHITIS [None]
  - BUNDLE BRANCH BLOCK [None]
  - CANDIDIASIS [None]
  - CARDIAC FAILURE CONGESTIVE [None]
  - CARDIOMYOPATHY [None]
  - CATARACT OPERATION [None]
  - CEREBRAL ISCHAEMIA [None]
  - CHEST TUBE INSERTION [None]
  - CHOLECYSTECTOMY [None]
  - CONCOMITANT DISEASE AGGRAVATED [None]
  - CONFUSIONAL STATE [None]
  - CONTUSION [None]
  - COUGH [None]
  - DEAFNESS NEUROSENSORY [None]
  - DECREASED APPETITE [None]
  - DEFORMITY [None]
  - DEHYDRATION [None]
  - DISABILITY [None]
  - DIZZINESS [None]
  - DYSARTHRIA [None]
  - DYSGEUSIA [None]
  - DYSPNOEA [None]
  - EMOTIONAL DISTRESS [None]
  - EUSTACHIAN TUBE DYSFUNCTION [None]
  - EXOSTOSIS [None]
  - FALL [None]
  - GASTROOESOPHAGEAL REFLUX DISEASE [None]
  - GRANULOMA [None]
  - HEPATIC CYST [None]
  - HERPES ZOSTER [None]
  - HYPOAESTHESIA [None]
  - HYPOGAMMAGLOBULINAEMIA [None]
  - HYPOTENSION [None]
  - IMPLANTABLE DEFIBRILLATOR INSERTION [None]
  - INFECTION [None]
  - INFLAMMATION [None]
  - INTERVERTEBRAL DISC PROTRUSION [None]
  - JAW OPERATION [None]
  - LEFT VENTRICULAR DYSFUNCTION [None]
  - LYMPHADENOPATHY [None]
  - METASTASES TO LIVER [None]
  - MUCOSAL INFLAMMATION [None]
  - MUSCULOSKELETAL STIFFNESS [None]
  - NASAL DISORDER [None]
  - NEPHROLITHIASIS [None]
  - NEURALGIA [None]
  - NEUROPATHY PERIPHERAL [None]
  - NEUTROPENIA [None]
  - NEUTROPHIL COUNT INCREASED [None]
  - NON-HODGKIN'S LYMPHOMA RECURRENT [None]
  - OPEN WOUND [None]
  - OROPHARYNGEAL PAIN [None]
  - OSTEOARTHRITIS [None]
  - OSTEOMYELITIS [None]
  - OSTEONECROSIS OF JAW [None]
  - PAIN [None]
  - PERICARDIAL EFFUSION [None]
  - PLEURAL EFFUSION [None]
  - PLEURITIC PAIN [None]
  - PNEUMONIA [None]
  - PRESYNCOPE [None]
  - PROSTATOMEGALY [None]
  - PULMONARY FIBROSIS [None]
  - PURULENT DISCHARGE [None]
  - RADIATION INJURY [None]
  - RADIOTHERAPY [None]
  - RENAL CYST [None]
  - RENAL FAILURE [None]
  - RHINORRHOEA [None]
  - SEQUESTRECTOMY [None]
  - SINUS OPERATION [None]
  - SINUSITIS [None]
  - SOFT TISSUE INFLAMMATION [None]
  - SPINAL COLUMN STENOSIS [None]
  - SPINAL OSTEOARTHRITIS [None]
  - THROMBOCYTOPENIA [None]
  - TOOTH ABSCESS [None]
  - UPPER RESPIRATORY TRACT INFECTION [None]
  - URINARY TRACT INFECTION [None]
  - VENTRICULAR TACHYCARDIA [None]
  - WEIGHT DECREASED [None]
  - WHITE BLOOD CELL COUNT DECREASED [None]
